FAERS Safety Report 25491664 (Version 1)
Quarter: 2025Q2

REPORT INFORMATION
  Report Type: Spontaneous
  Country: MY (occurrence: MY)
  Receive Date: 20250630
  Receipt Date: 20250630
  Transmission Date: 20250716
  Serious: Yes (Other)
  Sender: NOVARTIS
  Company Number: MY-002147023-NVSC2025MY099438

PATIENT
  Age: 61 Year
  Sex: Male

DRUGS (1)
  1. ASCIMINIB [Suspect]
     Active Substance: ASCIMINIB
     Indication: Product used for unknown indication
     Dosage: 80 MG, QD
     Route: 065
     Dates: start: 20241124, end: 20241208

REACTIONS (7)
  - Philadelphia chromosome positive [Unknown]
  - Dyspnoea [Unknown]
  - Chest pain [Unknown]
  - Haemoglobin decreased [Unknown]
  - Platelet count increased [Unknown]
  - White blood cell count increased [Unknown]
  - Drug intolerance [Unknown]

NARRATIVE: CASE EVENT DATE: 20241124
